FAERS Safety Report 18898641 (Version 1)
Quarter: 2021Q1

REPORT INFORMATION
  Report Type: Spontaneous
  Country: FR (occurrence: FR)
  Receive Date: 20210216
  Receipt Date: 20210216
  Transmission Date: 20210420
  Serious: Yes (Other)
  Sender: FDA-Public Use
  Company Number: NVSC2021FR030805

PATIENT
  Sex: Male
  Weight: 105 kg

DRUGS (15)
  1. ETOMIDATE LIPURO [Suspect]
     Active Substance: ETOMIDATE
     Indication: INDUCTION OF ANAESTHESIA
     Dosage: 40 MG, QD
     Route: 042
     Dates: start: 20200419, end: 20200419
  2. SUXAMETHONIUM [Suspect]
     Active Substance: SUCCINYLCHOLINE
     Indication: ANAESTHESIA
     Dosage: 100 MG, QD
     Route: 042
     Dates: start: 20200419, end: 20200419
  3. GELOFUSINE [SODIUM CHLORIDE\SUCCINYLATED GELATIN] [Suspect]
     Active Substance: SODIUM CHLORIDE\SUCCINYLATED GELATIN
     Indication: HAEMORRHAGE
     Dosage: 500 MG, QD
     Route: 042
     Dates: start: 20200419, end: 20200419
  4. SUFENTANIL [Suspect]
     Active Substance: SUFENTANIL
     Indication: INDUCTION OF ANAESTHESIA
     Dosage: 40 UG, QD
     Route: 042
     Dates: start: 20200419, end: 20200419
  5. ACIDE TRANEXAMIQUE [Suspect]
     Active Substance: TRANEXAMIC ACID
     Indication: HAEMORRHAGE
     Dosage: 1 G, TOTAL
     Route: 042
     Dates: start: 20200419, end: 20200419
  6. NOR?ADRENALIN [NOREPINEPHRINE BITARTRATE] [Suspect]
     Active Substance: NOREPINEPHRINE BITARTRATE
     Indication: SHOCK HAEMORRHAGIC
     Dosage: UNK
     Route: 042
     Dates: start: 20200419, end: 20200419
  7. CLOTTAFACT [Suspect]
     Active Substance: FIBRINOGEN HUMAN
     Indication: HAEMORRHAGE
     Dosage: 3 G, QD
     Route: 042
     Dates: start: 20200419, end: 20200419
  8. ACUPAN [Suspect]
     Active Substance: NEFOPAM HYDROCHLORIDE
     Indication: PAIN
     Dosage: UNK
     Route: 042
     Dates: start: 20200418, end: 20200418
  9. MIDAZOLAM MYLAN [Suspect]
     Active Substance: MIDAZOLAM HYDROCHLORIDE
     Indication: INDUCTION OF ANAESTHESIA
     Dosage: 1 MG, QD
     Route: 042
     Dates: start: 20200419, end: 20200419
  10. CHLORHEXIDINE [Suspect]
     Active Substance: CHLORHEXIDINE
     Indication: INFECTION PROPHYLAXIS
     Dosage: UNK
     Route: 003
     Dates: start: 20200419, end: 20200419
  11. ROCURONIUM [Suspect]
     Active Substance: ROCURONIUM BROMIDE
     Indication: INDUCTION OF ANAESTHESIA
     Dosage: 100 MG, QD
     Route: 042
     Dates: start: 20200419, end: 20200419
  12. MORPHINE [Suspect]
     Active Substance: MORPHINE
     Indication: PAIN
     Dosage: 7 MG, QD
     Route: 042
     Dates: start: 20200418, end: 20200418
  13. PERFALGAN [Suspect]
     Active Substance: ACETAMINOPHEN
     Indication: PAIN
     Dosage: 1 G, QD
     Route: 042
     Dates: start: 20200418, end: 20200418
  14. IOMERON [Suspect]
     Active Substance: IOMEPROL
     Indication: COMPUTERISED TOMOGRAM
     Dosage: 120 ML, QD
     Route: 042
     Dates: start: 20200418, end: 20200418
  15. AMOXICILLINE/ACIDE CLAVULANIQUE SANDOZ [Suspect]
     Active Substance: AMOXICILLIN\CLAVULANIC ACID
     Indication: ANTIBIOTIC PROPHYLAXIS
     Dosage: 2 G (1 TOTAL)
     Route: 042
     Dates: start: 20200419, end: 20200419

REACTIONS (2)
  - Angioedema [Recovered/Resolved]
  - Off label use [Unknown]

NARRATIVE: CASE EVENT DATE: 20200419
